FAERS Safety Report 9312709 (Version 3)
Quarter: 2013Q2

REPORT INFORMATION
  Report Type: Spontaneous
  Country: EC (occurrence: EC)
  Receive Date: 20130528
  Receipt Date: 20130627
  Transmission Date: 20140414
  Serious: Yes (Death, Life-Threatening, Hospitalization)
  Sender: FDA-Public Use
  Company Number: EC-ACTELION-A-CH2013-83721

PATIENT
  Age: 36 Year
  Sex: Female

DRUGS (5)
  1. TRACLEER [Suspect]
     Indication: PULMONARY ARTERIAL HYPERTENSION
     Dosage: 62.5 MG, BID
     Route: 048
     Dates: start: 20130418, end: 20130507
  2. FUROSEMIDE [Concomitant]
  3. SPIRONOLACTONE [Concomitant]
  4. DILTIAZEM [Concomitant]
  5. SILDENAFIL [Concomitant]

REACTIONS (8)
  - Death [Fatal]
  - Abdominal pain [Unknown]
  - Headache [Unknown]
  - Dizziness [Unknown]
  - Face oedema [Unknown]
  - Nausea [Unknown]
  - Vomiting [Unknown]
  - Hypotension [Unknown]
